FAERS Safety Report 15822613 (Version 5)
Quarter: 2019Q1

REPORT INFORMATION
  Report Type: Report from Study
  Country: TW (occurrence: TW)
  Receive Date: 20190114
  Receipt Date: 20190211
  Transmission Date: 20190417
  Serious: Yes (Life-Threatening, Hospitalization)
  Sender: FDA-Public Use
  Company Number: TW-JNJFOC-20190114077

PATIENT
  Age: 41 Year
  Sex: Male
  Weight: 60 kg

DRUGS (6)
  1. STELARA [Suspect]
     Active Substance: USTEKINUMAB
     Indication: PSORIASIS
     Route: 058
     Dates: start: 20180214, end: 20181128
  2. XAMIOL [Concomitant]
     Active Substance: BETAMETHASONE DIPROPIONATE\CALCIPOTRIENE HYDRATE
     Indication: PSORIASIS
     Dosage: QN
     Route: 061
     Dates: start: 20181128, end: 20181228
  3. CLINDAMYCIN. [Concomitant]
     Active Substance: CLINDAMYCIN
     Indication: FOLLICULITIS
     Dosage: QN
     Route: 061
     Dates: start: 20181128, end: 20181228
  4. ZALAIN [Concomitant]
     Active Substance: SERTACONAZOLE NITRATE
     Indication: FOLLICULITIS
     Dosage: QN
     Route: 061
     Dates: start: 20181128, end: 20181228
  5. CLOBETASOL [Concomitant]
     Active Substance: CLOBETASOL
     Indication: PSORIASIS
     Dosage: QN
     Route: 061
     Dates: start: 20181128, end: 20181228
  6. ACZO [Concomitant]
     Indication: FOLLICULITIS
     Dosage: QN
     Route: 061
     Dates: start: 20181128, end: 20181228

REACTIONS (6)
  - Hepatitis B reactivation [Unknown]
  - Psoriasis [Unknown]
  - Acute hepatic failure [Recovered/Resolved]
  - Pancreatitis [Unknown]
  - Chronic obstructive pulmonary disease [Recovering/Resolving]
  - Oral candidiasis [Unknown]

NARRATIVE: CASE EVENT DATE: 20190103
